FAERS Safety Report 19212086 (Version 1)
Quarter: 2021Q2

REPORT INFORMATION
  Report Type: Spontaneous
  Country: US (occurrence: US)
  Receive Date: 20210503
  Receipt Date: 20210503
  Transmission Date: 20210717
  Serious: No
  Sender: FDA-Public Use
  Company Number: None

PATIENT
  Age: 74 Year
  Sex: Male
  Weight: 77 kg

DRUGS (1)
  1. GABAPENTIN (GABAPENTIN 600MG TAB) [Suspect]
     Active Substance: GABAPENTIN
     Indication: NEUROPATHY PERIPHERAL
     Route: 048
     Dates: start: 20191028, end: 20191127

REACTIONS (6)
  - Rash [None]
  - Skin haemorrhage [None]
  - Skin ulcer [None]
  - Pruritus [None]
  - Urticaria [None]
  - Blister [None]

NARRATIVE: CASE EVENT DATE: 20191127
